FAERS Safety Report 13349564 (Version 1)
Quarter: 2017Q1

REPORT INFORMATION
  Report Type: Spontaneous
  Country: US (occurrence: US)
  Receive Date: 20170317
  Receipt Date: 20170317
  Transmission Date: 20170428
  Serious: Yes (Disabling)
  Sender: FDA-Public Use
  Company Number: None

PATIENT
  Age: 52 Year
  Sex: Female
  Weight: 47.25 kg

DRUGS (26)
  1. MINIVILLE HORMONE PATCH [Concomitant]
  2. MAGNESIUM [Concomitant]
     Active Substance: MAGNESIUM
  3. SELENIUM [Concomitant]
     Active Substance: SELENIUM
  4. APPLE CIDER VINEGAR AND LAVENDER [Concomitant]
  5. PEPPERMINT. [Concomitant]
     Active Substance: PEPPERMINT
  6. LEMON ESSENTIAL OILS [Concomitant]
  7. VITAMIN E [Concomitant]
     Active Substance: .ALPHA.-TOCOPHEROL
  8. TURMERIC [Concomitant]
     Active Substance: TURMERIC
  9. MULTI. MELATONIN [Concomitant]
  10. MARSHMALLOW [Concomitant]
     Active Substance: ALCOHOL
  11. EYE BRIGHT [Concomitant]
  12. IODINE. [Concomitant]
     Active Substance: IODINE
  13. COQ10 [Concomitant]
     Active Substance: UBIDECARENONE
  14. PQQMIND [Concomitant]
  15. VITAMIN C [Concomitant]
     Active Substance: ASCORBIC ACID
  16. 5-HTP [Concomitant]
     Active Substance: OXITRIPTAN
  17. LEVOFLOXACIN. [Suspect]
     Active Substance: LEVOFLOXACIN
     Indication: SINUSITIS
     Dosage: ?          QUANTITY:14 TABLET(S);?
     Route: 048
     Dates: start: 20141030, end: 20141105
  18. ADRENAL SUPPORT [Concomitant]
     Active Substance: HOMEOPATHICS
  19. NADH [Concomitant]
     Active Substance: NADH
  20. PROBIOTICS [Concomitant]
     Active Substance: PROBIOTICS NOS
  21. VITAMIN D [Concomitant]
     Active Substance: CHOLECALCIFEROL
  22. GABA [Concomitant]
     Active Substance: HOMEOPATHICS
  23. METHYLCOBALAMIN B12 [Concomitant]
  24. FISH OIL [Concomitant]
     Active Substance: FISH OIL
  25. K2 [Concomitant]
     Active Substance: JWH-018
  26. CHLORELLA [Concomitant]

REACTIONS (33)
  - Tendon rupture [None]
  - Lacrimation increased [None]
  - Blepharospasm [None]
  - Visual impairment [None]
  - Insomnia [None]
  - Muscular weakness [None]
  - Eye disorder [None]
  - Tendonitis [None]
  - Hepatic enzyme increased [None]
  - Tremor [None]
  - Myalgia [None]
  - Depersonalisation/derealisation disorder [None]
  - Systemic lupus erythematosus [None]
  - Hyperacusis [None]
  - Muscle twitching [None]
  - Tinnitus [None]
  - Photophobia [None]
  - Muscle atrophy [None]
  - Vitreous floaters [None]
  - Depression [None]
  - Back pain [None]
  - Sensory disturbance [None]
  - Cystitis interstitial [None]
  - Pain in extremity [None]
  - Neuropathy peripheral [None]
  - Muscle spasms [None]
  - Malaise [None]
  - Panic attack [None]
  - Restless legs syndrome [None]
  - Raynaud^s phenomenon [None]
  - Palpitations [None]
  - Suicidal ideation [None]
  - Sjogren^s syndrome [None]

NARRATIVE: CASE EVENT DATE: 20141030
